APPROVED DRUG PRODUCT: EFAVIRENZ
Active Ingredient: EFAVIRENZ
Strength: 600MG
Dosage Form/Route: TABLET;ORAL
Application: A091579 | Product #001 | TE Code: AB
Applicant: MACLEODS PHARMACEUTICALS LTD
Approved: May 10, 2024 | RLD: No | RS: No | Type: RX